FAERS Safety Report 5219963-X (Version None)
Quarter: 2007Q1

REPORT INFORMATION
  Report Type: 
  Country: None (occurrence: None)
  Receive Date: 20070125
  Receipt Date: 20070116
  Transmission Date: 20070707
  Serious: Yes (Other)
  Sender: FDA-Public Use
  Company Number: DE-PFIZER INC-2007005188

PATIENT
  Age: 77 Year
  Sex: Male
  Weight: 95 kg

DRUGS (5)
  1. CARDULAR PP [Suspect]
     Route: 048
  2. ENAHEXAL [Concomitant]
  3. SPIRONOLACTONE [Concomitant]
  4. SIMVASTATIN [Concomitant]
  5. MARCUMAR [Concomitant]

REACTIONS (2)
  - GYNAECOMASTIA [None]
  - WEIGHT INCREASED [None]
